FAERS Safety Report 11202360 (Version 1)
Quarter: 2015Q2

REPORT INFORMATION
  Report Type: Spontaneous
  Country: PT (occurrence: PT)
  Receive Date: 20150619
  Receipt Date: 20150619
  Transmission Date: 20150821
  Serious: Yes (Life-Threatening, Hospitalization)
  Sender: FDA-Public Use
  Company Number: PT-PFIZER INC-2015201132

PATIENT
  Age: 40 Year
  Sex: Female

DRUGS (4)
  1. TRINORDIOL [Concomitant]
     Active Substance: ETHINYL ESTRADIOL\LEVONORGESTREL
     Indication: ORAL CONTRACEPTION
     Dosage: 1 DF, 1X/DAY
     Route: 048
  2. SALAZOPIRINA EN [Suspect]
     Active Substance: SULFASALAZINE
     Indication: ANKYLOSING SPONDYLITIS
     Dosage: 1000 MG, 2X/DAY
     Route: 048
     Dates: start: 20050714, end: 20050803
  3. VENOSMIL /01246301/ [Concomitant]
     Dosage: 200 MG, 3X/DAY
     Route: 048
     Dates: start: 200507
  4. EXXIV [Concomitant]
     Active Substance: ETORICOXIB
     Indication: ANKYLOSING SPONDYLITIS
     Dosage: 90 MG, 1X/DAY
     Route: 048
     Dates: start: 2004

REACTIONS (10)
  - Tongue oedema [Recovered/Resolved]
  - Laryngeal oedema [Recovered/Resolved]
  - Rash generalised [Recovered/Resolved]
  - Erythema [Recovered/Resolved]
  - Pruritus generalised [Recovered/Resolved]
  - Rash morbilliform [Recovered/Resolved]
  - Dyspnoea [Recovered/Resolved]
  - Oropharyngeal pain [Recovered/Resolved]
  - Sensation of foreign body [Recovered/Resolved]
  - Toxic skin eruption [Recovered/Resolved]

NARRATIVE: CASE EVENT DATE: 20050728
